FAERS Safety Report 25896192 (Version 1)
Quarter: 2025Q4

REPORT INFORMATION
  Report Type: Spontaneous
  Country: CN (occurrence: CN)
  Receive Date: 20251008
  Receipt Date: 20251008
  Transmission Date: 20260118
  Serious: Yes (Hospitalization)
  Sender: NOVARTIS
  Company Number: CN-002147023-NVSC2025CN150804

PATIENT
  Age: 55 Year
  Sex: Female
  Weight: 45 kg

DRUGS (3)
  1. RIBOCICLIB [Suspect]
     Active Substance: RIBOCICLIB
     Indication: Breast cancer
     Dosage: 600 MG, QD (FOR 21 DAYS, THEN STOPPED FOR 7 DAYS)
     Route: 048
     Dates: start: 20250814
  2. RIBOCICLIB [Suspect]
     Active Substance: RIBOCICLIB
     Dosage: UNK (CYCLE 2)
     Route: 065
     Dates: start: 20250915, end: 20250919
  3. ANASTROZOLE [Suspect]
     Active Substance: ANASTROZOLE
     Indication: Breast cancer
     Dosage: 1 DOSAGE FORM, QD
     Route: 048
     Dates: start: 20250814, end: 20250919

REACTIONS (6)
  - Erythema multiforme [Not Recovered/Not Resolved]
  - Erythema [Not Recovered/Not Resolved]
  - Face oedema [Not Recovered/Not Resolved]
  - Oedema peripheral [Not Recovered/Not Resolved]
  - Localised oedema [Not Recovered/Not Resolved]
  - Pruritus [Recovering/Resolving]

NARRATIVE: CASE EVENT DATE: 20250919
